FAERS Safety Report 10156455 (Version 1)
Quarter: 2014Q2

REPORT INFORMATION
  Report Type: Report from Study
  Country: US (occurrence: US)
  Receive Date: 20140507
  Receipt Date: 20140507
  Transmission Date: 20141212
  Serious: Yes (Other)
  Sender: FDA-Public Use
  Company Number: US-ROCHE-1393328

PATIENT
  Sex: Female

DRUGS (1)
  1. KLONOPIN [Suspect]
     Indication: CONVULSION
     Route: 065

REACTIONS (1)
  - Cerebrovascular accident [Unknown]
